FAERS Safety Report 20359443 (Version 1)
Quarter: 2022Q1

REPORT INFORMATION
  Report Type: Spontaneous
  Country: FR (occurrence: FR)
  Receive Date: 20220121
  Receipt Date: 20220121
  Transmission Date: 20220423
  Serious: Yes (Other)
  Sender: FDA-Public Use
  Company Number: FR-SUN PHARMACEUTICAL INDUSTRIES LTD-2022RR-324576

PATIENT
  Age: 70 Year
  Sex: Female

DRUGS (1)
  1. SONIDEGIB [Suspect]
     Active Substance: SONIDEGIB
     Indication: Basal cell carcinoma
     Dosage: 200 MILLIGRAM, DAILY
     Route: 065

REACTIONS (5)
  - Therapeutic product effect incomplete [Unknown]
  - Muscle spasms [Unknown]
  - Muscle fatigue [Unknown]
  - Dysgeusia [Unknown]
  - Gastrointestinal motility disorder [Unknown]
